FAERS Safety Report 4473245-2 (Version None)
Quarter: 2004Q4

REPORT INFORMATION
  Report Type: 
  Country: None (occurrence: None)
  Receive Date: 20041013
  Receipt Date: 20040909
  Transmission Date: 20050328
  Serious: Yes (Other)
  Sender: FDA-Public Use
  Company Number: PHBS2004JP12104

PATIENT
  Age: 58 Year
  Sex: Male

DRUGS (8)
  1. DIOVAN [Suspect]
     Indication: HYPERTENSION
     Dosage: 80 MG/DAY
     Route: 048
  2. ZYLORIC [Concomitant]
     Dosage: 100 MG, UNK
     Route: 048
  3. ONON [Concomitant]
     Dosage: 225 MG, UNK
     Route: 048
  4. TANKARU [Concomitant]
     Dosage: 300 MG, UNK
     Route: 048
  5. MUCOSOLVAN [Concomitant]
     Dosage: 45 MG, UNK
     Route: 048
  6. GASTER [Concomitant]
     Dosage: 20 MG, UNK
     Route: 048
  7. THEOLONG [Concomitant]
     Dosage: 400 MG, UNK
     Route: 048
  8. QVAR 40 [Concomitant]
     Dosage: 2DF

REACTIONS (3)
  - ANAPHYLACTIC SHOCK [None]
  - DEVICE INTERACTION [None]
  - MEDICAL DEVICE COMPLICATION [None]
